FAERS Safety Report 10694978 (Version 3)
Quarter: 2015Q1

REPORT INFORMATION
  Report Type: Spontaneous
  Country: US (occurrence: US)
  Receive Date: 20150107
  Receipt Date: 20150326
  Transmission Date: 20150721
  Serious: Yes (Disabling, Other)
  Sender: FDA-Public Use
  Company Number: US-009507513-1501USA001285

PATIENT
  Age: 76 Year
  Sex: Female
  Weight: 83.45 kg

DRUGS (1)
  1. ZETIA [Suspect]
     Active Substance: EZETIMIBE
     Indication: BLOOD CHOLESTEROL ABNORMAL
     Dosage: 10 MG/ ONE TABLET ONCE A DAY
     Route: 048
     Dates: start: 2014

REACTIONS (3)
  - Product physical issue [Unknown]
  - Back pain [Recovered/Resolved]
  - Road traffic accident [Recovered/Resolved]

NARRATIVE: CASE EVENT DATE: 201407
